FAERS Safety Report 24436834 (Version 1)
Quarter: 2024Q4

REPORT INFORMATION
  Report Type: Spontaneous
  Country: US (occurrence: US)
  Receive Date: 20241015
  Receipt Date: 20241015
  Transmission Date: 20250115
  Serious: Yes (Life-Threatening, Hospitalization, Other)
  Sender: HIKMA
  Company Number: US-MLMSERVICE-20240923-PI203929-00295-1

PATIENT
  Age: 56 Year
  Sex: Female

DRUGS (2)
  1. COLCHICINE [Suspect]
     Active Substance: COLCHICINE
     Indication: Viral pericarditis
     Dosage: 24 MILLIGRAM, SINGLE
     Route: 065
  2. SERTRALINE [Suspect]
     Active Substance: SERTRALINE HYDROCHLORIDE
     Indication: Product used for unknown indication
     Dosage: 6000 MILLIGRAM, SINGLE
     Route: 065

REACTIONS (5)
  - Acute kidney injury [Recovering/Resolving]
  - Metabolic acidosis [Recovered/Resolved]
  - Suicide attempt [Unknown]
  - Shock [Recovered/Resolved]
  - Intentional overdose [Unknown]
